FAERS Safety Report 8848894 (Version 1)
Quarter: 2012Q4

REPORT INFORMATION
  Report Type: Spontaneous
  Country: US (occurrence: None)
  Receive Date: 20121015
  Receipt Date: 20121015
  Transmission Date: 20130627
  Serious: Yes (Other)
  Sender: FDA-Public Use
  Company Number: 2012P1060546

PATIENT
  Age: 4 Year
  Sex: Female

DRUGS (2)
  1. DEXAMETHASONE [Suspect]
  2. PEGASPARGASE [Suspect]
     Route: 042

REACTIONS (2)
  - Hypertriglyceridaemia [None]
  - Blood triglycerides increased [None]
